FAERS Safety Report 9137370 (Version 3)
Quarter: 2013Q3

REPORT INFORMATION
  Report Type: Spontaneous
  Country: US (occurrence: US)
  Receive Date: 20130304
  Receipt Date: 20130717
  Transmission Date: 20140515
  Serious: Yes (Other)
  Sender: FDA-Public Use
  Company Number: US-PFIZER INC-2013070795

PATIENT
  Age: 58 Year
  Sex: Male
  Weight: 47.17 kg

DRUGS (2)
  1. XYNTHA [Suspect]
     Indication: PROPHYLAXIS
     Dosage: 20 IU/KG, 2 TIMES PER WEEK (ON DEMAND)
     Route: 042
  2. XYNTHA [Suspect]
     Indication: FACTOR VIII DEFICIENCY
     Dosage: 20 IU/KG, UNK (PROPHYLACTIC USE)

REACTIONS (4)
  - Haemorrhage [Unknown]
  - Factor VIII inhibition [Unknown]
  - Off label use [Unknown]
  - Joint injury [Unknown]
